FAERS Safety Report 18373947 (Version 1)
Quarter: 2020Q4

REPORT INFORMATION
  Report Type: Spontaneous
  Country: DE (occurrence: DE)
  Receive Date: 20201013
  Receipt Date: 20201013
  Transmission Date: 20210114
  Serious: Yes (Other)
  Sender: FDA-Public Use
  Company Number: DE-ASTELLAS-2020US035792

PATIENT
  Age: 58 Year
  Sex: Female

DRUGS (1)
  1. XOSPATA [Suspect]
     Active Substance: GILTERITINIB
     Indication: PRODUCT USED FOR UNKNOWN INDICATION
     Dosage: 120 MG, ONCE DAILY (3 X 40 MG TABLETS)
     Route: 065
     Dates: start: 20200926

REACTIONS (1)
  - Aplasia [Not Recovered/Not Resolved]
